FAERS Safety Report 17125462 (Version 1)
Quarter: 2019Q4

REPORT INFORMATION
  Report Type: Spontaneous
  Country: CZ (occurrence: CZ)
  Receive Date: 20191207
  Receipt Date: 20191207
  Transmission Date: 20200122
  Serious: Yes (Hospitalization)
  Sender: FDA-Public Use
  Company Number: CZ-ACCORD-070178

PATIENT
  Age: 68 Year
  Sex: Female

DRUGS (6)
  1. CETIRIZINE [Suspect]
     Active Substance: CETIRIZINE HYDROCHLORIDE
     Indication: PREMEDICATION
     Dosage: DOSAGE TEXT: 10 MG, QD
     Route: 065
     Dates: start: 20160120, end: 20160120
  2. PARACETAMOL [Suspect]
     Active Substance: ACETAMINOPHEN
     Indication: PREMEDICATION
     Dosage: DOSAGE FORM: UNSPECIFIED
     Route: 065
     Dates: start: 20160120, end: 20160120
  3. PARACETAMOL [Suspect]
     Active Substance: ACETAMINOPHEN
     Indication: PREMEDICATION
     Dosage: DOSAGE FORM: UNSPECIFIED,1000 MG, QD
     Route: 065
     Dates: start: 20160120, end: 20160120
  4. ALLOPURINOL. [Suspect]
     Active Substance: ALLOPURINOL
     Indication: HYPERURICAEMIA
     Dosage: 1 UNIT, QD
     Route: 065
     Dates: start: 20160120, end: 20160120
  5. OBINUTUZUMAB. [Suspect]
     Active Substance: OBINUTUZUMAB
     Indication: CHRONIC LYMPHOCYTIC LEUKAEMIA
     Dosage: DOSAGE FORM: UNSPECIFIED,100 MG, UNK
     Route: 065
     Dates: start: 20160120, end: 20160120
  6. DEXAMETHASONE. [Suspect]
     Active Substance: DEXAMETHASONE
     Indication: PREMEDICATION
     Dosage: DOSAGE FORM: UNSPECIFIED?DOSAGE TEXT: 20 MG, QD
     Route: 065
     Dates: start: 20160120, end: 20160120

REACTIONS (5)
  - C-reactive protein increased [Recovered/Resolved]
  - Sinusitis [Recovered/Resolved]
  - Pharyngeal swelling [Recovered/Resolved]
  - Neck pain [Recovered/Resolved]
  - Erythema [Recovered/Resolved]

NARRATIVE: CASE EVENT DATE: 20160121
